FAERS Safety Report 7984181-9 (Version None)
Quarter: 2011Q4

REPORT INFORMATION
  Report Type: 
  Country: None (occurrence: None)
  Receive Date: 20111214
  Receipt Date: 20111201
  Transmission Date: 20120403
  Serious: Yes (Other)
  Sender: FDA-Public Use
  Company Number: MC201100591

PATIENT
  Age: 87 Year
  Sex: Female

DRUGS (3)
  1. ANGIOMAX [Suspect]
     Indication: PERCUTANEOUS CORONARY INTERVENTION
     Dosage: 0.75 MG/KG, BOLUS, INTRAVENOUS ; 1.0 MG/KG, HR, INTRAVENOUS
     Route: 042
     Dates: start: 20111201, end: 20111201
  2. ANGIOMAX [Suspect]
     Indication: PERCUTANEOUS CORONARY INTERVENTION
     Dosage: 0.75 MG/KG, BOLUS, INTRAVENOUS ; 1.0 MG/KG, HR, INTRAVENOUS
     Route: 042
     Dates: start: 20111201
  3. CONTRAST MEDIA () [Suspect]
     Indication: PERCUTANEOUS CORONARY INTERVENTION
     Dates: start: 20111201

REACTIONS (4)
  - SKIN TIGHTNESS [None]
  - BLOOD PRESSURE DECREASED [None]
  - SWELLING FACE [None]
  - INFUSION RELATED REACTION [None]
